FAERS Safety Report 5931830-2 (Version None)
Quarter: 2008Q4

REPORT INFORMATION
  Report Type: 
  Country: None (occurrence: None)
  Receive Date: 20081022
  Receipt Date: 20081015
  Transmission Date: 20090506
  Serious: Yes (Other)
  Sender: FDA-Public Use
  Company Number: 2008SP020933

PATIENT
  Age: 64 Year
  Sex: Male

DRUGS (1)
  1. NOXAFIL [Suspect]
     Indication: FUNGAL INFECTION

REACTIONS (3)
  - DRUG LEVEL DECREASED [None]
  - OVERDOSE [None]
  - POLYNEUROPATHY [None]
